FAERS Safety Report 4875315-3 (Version None)
Quarter: 2006Q1

REPORT INFORMATION
  Report Type: 
  Country: None (occurrence: None)
  Receive Date: 20060109
  Receipt Date: 20051207
  Transmission Date: 20060701
  Serious: Yes (Death, Hospitalization, Disabling)
  Sender: FDA-Public Use
  Company Number: US-MERCK-0512USA01501

PATIENT
  Age: 56 Year
  Sex: Female
  Weight: 82 kg

DRUGS (17)
  1. VIOXX [Suspect]
     Indication: PAIN
     Route: 048
     Dates: start: 20000501, end: 20031205
  2. ECOTRIN [Concomitant]
     Route: 065
  3. ALTACE [Concomitant]
     Route: 065
  4. TOPROL-XL [Concomitant]
     Route: 065
  5. LORTAB [Concomitant]
     Route: 065
  6. PREVACID [Concomitant]
     Route: 065
  7. NEURONTIN [Concomitant]
     Route: 065
  8. PRAVACHOL [Concomitant]
     Route: 065
  9. ESTROGENS (UNSPECIFIED) [Concomitant]
     Route: 065
  10. ALDACTAZIDE [Concomitant]
     Route: 065
  11. WELLBUTRIN [Concomitant]
     Route: 065
  12. NORFLEX [Concomitant]
     Route: 065
  13. BUSPAR [Concomitant]
     Route: 065
  14. MINITRAN [Concomitant]
     Route: 065
  15. MIACALCIN [Concomitant]
     Route: 065
  16. COMBIVENT [Concomitant]
     Route: 065
  17. ASPIRIN FREE EXCEDRIN [Concomitant]
     Route: 065

REACTIONS (3)
  - EMOTIONAL DISTRESS [None]
  - MYOCARDIAL INFARCTION [None]
  - SPINAL DECOMPRESSION [None]
